FAERS Safety Report 22183729 (Version 1)
Quarter: 2023Q2

REPORT INFORMATION
  Report Type: Spontaneous
  Country: US (occurrence: US)
  Receive Date: 20230406
  Receipt Date: 20230406
  Transmission Date: 20230722
  Serious: Yes (Other)
  Sender: FDA-Public Use
  Company Number: US-BRISTOL-MYERS SQUIBB COMPANY-2023-045613

PATIENT
  Age: 70 Year
  Sex: Female
  Weight: 55.34 kg

DRUGS (1)
  1. LENALIDOMIDE [Suspect]
     Active Substance: LENALIDOMIDE
     Indication: Plasma cell myeloma
     Dosage: TAKE 1 CAPSULE BY MOUTH WHOLE  WITH
     Route: 048
     Dates: start: 20221028

REACTIONS (4)
  - Asthenia [Unknown]
  - Nasopharyngitis [Unknown]
  - Fracture [Recovering/Resolving]
  - Oxygen saturation decreased [Unknown]
